FAERS Safety Report 6370400-1 (Version None)
Quarter: 2009Q3

REPORT INFORMATION
  Report Type: 
  Country: None (occurrence: None)
  Receive Date: 20090923
  Receipt Date: 20090911
  Transmission Date: 20100115
  Serious: Yes (Other)
  Sender: FDA-Public Use
  Company Number: FR-TEVA-209855ISR

PATIENT
  Sex: Male

DRUGS (1)
  1. ISOTRETINOIN [Suspect]
     Dosage: 10 MG TO 40 MG PER DAY
     Route: 048
     Dates: start: 20081001, end: 20090201

REACTIONS (1)
  - ACUTE MYELOID LEUKAEMIA [None]
